FAERS Safety Report 12387695 (Version 13)
Quarter: 2023Q2

REPORT INFORMATION
  Report Type: Other
  Country: CA (occurrence: CA)
  Receive Date: 20160520
  Receipt Date: 20230622
  Transmission Date: 20230722
  Serious: Yes (Other)
  Sender: FDA-Public Use
  Company Number: CA-002147023-PHHY2015CA056468

PATIENT
  Age: 45 Year
  Sex: Female

DRUGS (12)
  1. XOLAIR [Suspect]
     Active Substance: OMALIZUMAB
     Indication: Asthma
     Route: 058
     Dates: start: 20120604
  2. XOLAIR [Suspect]
     Active Substance: OMALIZUMAB
     Route: 058
     Dates: start: 20170216
  3. XOLAIR [Suspect]
     Active Substance: OMALIZUMAB
     Route: 058
     Dates: start: 2017
  4. XOLAIR [Suspect]
     Active Substance: OMALIZUMAB
     Route: 058
     Dates: start: 20180816
  5. XOLAIR [Suspect]
     Active Substance: OMALIZUMAB
     Route: 058
     Dates: start: 20190627
  6. XOLAIR [Suspect]
     Active Substance: OMALIZUMAB
     Route: 058
  7. XOLAIR [Suspect]
     Active Substance: OMALIZUMAB
     Route: 058
     Dates: start: 20120406
  8. SINGULAIR [Concomitant]
     Active Substance: MONTELUKAST SODIUM
     Indication: Product used for unknown indication
     Route: 065
  9. VENTOLIN [Concomitant]
     Active Substance: ALBUTEROL SULFATE
     Indication: Product used for unknown indication
     Route: 065
  10. TUDORZA PRESSAIR [Concomitant]
     Active Substance: ACLIDINIUM BROMIDE
     Indication: Product used for unknown indication
     Dosage: 400 MG, BID (1 PUFF)
     Route: 065
     Dates: start: 2019
  11. SYMBICORT [Concomitant]
     Active Substance: BUDESONIDE\FORMOTEROL FUMARATE DIHYDRATE
     Indication: Product used for unknown indication
     Route: 065
  12. SYMBICORT [Concomitant]
     Active Substance: BUDESONIDE\FORMOTEROL FUMARATE DIHYDRATE
     Dosage: 2 PUFF
     Route: 065

REACTIONS (15)
  - Forced expiratory volume decreased [Unknown]
  - Lower respiratory tract infection [Unknown]
  - Obstructive airways disorder [Recovering/Resolving]
  - Middle insomnia [Unknown]
  - Asthenia [Unknown]
  - Pyrexia [Recovered/Resolved]
  - Chest discomfort [Recovering/Resolving]
  - Productive cough [Recovering/Resolving]
  - Oropharyngeal pain [Unknown]
  - Nasopharyngitis [Unknown]
  - Chills [Recovered/Resolved]
  - Abdominal discomfort [Recovered/Resolved]
  - Cough [Recovering/Resolving]
  - Asthma [Unknown]
  - Dyspnoea [Unknown]

NARRATIVE: CASE EVENT DATE: 20141201
